FAERS Safety Report 8823372 (Version 1)
Quarter: 2012Q4

REPORT INFORMATION
  Report Type: 
  Country: US (occurrence: US)
  Receive Date: 20121003
  Receipt Date: 20121003
  Transmission Date: 20130627
  Serious: Yes (Other)
  Sender: FDA-Public Use
  Company Number: US-BRISTOL-MYERS SQUIBB COMPANY-16954133

PATIENT

DRUGS (2)
  1. AMIKACIN SULFATE [Suspect]
     Indication: INTRACRANIAL HYPOTENSION
     Dosage: 20-40mg daily.
     Route: 037
  2. AMIKACIN SULFATE [Suspect]
     Indication: MENINGITIS BACTERIAL
     Dosage: 20-40mg daily.
     Route: 037

REACTIONS (1)
  - Back pain [Unknown]
